FAERS Safety Report 17405008 (Version 1)
Quarter: 2020Q1

REPORT INFORMATION
  Report Type: Spontaneous
  Country: GB (occurrence: GB)
  Receive Date: 20200212
  Receipt Date: 20200212
  Transmission Date: 20200409
  Serious: Yes (Other)
  Sender: FDA-Public Use
  Company Number: GB-AUROBINDO-AUR-APL-2020-006320

PATIENT
  Sex: Male

DRUGS (1)
  1. ARIPIPRAZOLE TABLETS 30 MG [Suspect]
     Active Substance: ARIPIPRAZOLE
     Indication: PRODUCT USED FOR UNKNOWN INDICATION
     Dosage: UNK
     Route: 065

REACTIONS (8)
  - Photophobia [Unknown]
  - Skin odour abnormal [Unknown]
  - Vision blurred [Unknown]
  - Syncope [Unknown]
  - Hypotension [Unknown]
  - Speech disorder [Unknown]
  - Diarrhoea [Unknown]
  - Alopecia [Unknown]
